FAERS Safety Report 23668397 (Version 6)
Quarter: 2024Q2

REPORT INFORMATION
  Report Type: Spontaneous
  Country: CA (occurrence: CA)
  Receive Date: 20240325
  Receipt Date: 20240430
  Transmission Date: 20240715
  Serious: Yes (Life-Threatening, Hospitalization, Other)
  Sender: FDA-Public Use
  Company Number: CA-TEVA-VS-3171858

PATIENT
  Age: 5 Year
  Sex: Female
  Weight: 18 kg

DRUGS (26)
  1. METHOTREXATE [Suspect]
     Active Substance: METHOTREXATE
     Indication: Product used for unknown indication
     Dosage: TIME INTERVAL: CYCLICAL
     Route: 042
  2. METHOTREXATE [Suspect]
     Active Substance: METHOTREXATE
     Indication: Product used for unknown indication
     Dosage: TIME INTERVAL: CYCLICAL
     Route: 037
  3. METHOTREXATE [Suspect]
     Active Substance: METHOTREXATE
     Indication: Product used for unknown indication
     Dosage: TIME INTERVAL: CYCLICAL
     Route: 042
  4. METHOTREXATE [Suspect]
     Active Substance: METHOTREXATE
     Indication: Product used for unknown indication
     Dosage: TIME INTERVAL: CYCLICAL
     Route: 037
  5. METHOTREXATE [Suspect]
     Active Substance: METHOTREXATE
     Indication: Product used for unknown indication
     Dosage: TIME INTERVAL: CYCLICAL
     Route: 042
  6. METHOTREXATE [Suspect]
     Active Substance: METHOTREXATE
     Indication: Product used for unknown indication
     Dosage: TIME INTERVAL: CYCLICAL
     Route: 042
  7. METHOTREXATE [Suspect]
     Active Substance: METHOTREXATE
     Indication: Product used for unknown indication
     Route: 042
  8. METHOTREXATE [Suspect]
     Active Substance: METHOTREXATE
     Indication: Product used for unknown indication
     Dosage: INJECTION
     Route: 037
  9. METHOTREXATE [Suspect]
     Active Substance: METHOTREXATE
     Indication: Product used for unknown indication
     Dosage: INJECTION
     Route: 042
  10. METHOTREXATE [Suspect]
     Active Substance: METHOTREXATE
     Indication: Product used for unknown indication
     Dosage: TIME INTERVAL: TOTAL
     Route: 042
  11. METHOTREXATE [Suspect]
     Active Substance: METHOTREXATE
     Indication: Product used for unknown indication
     Dosage: TIME INTERVAL: TOTAL
     Route: 042
  12. METHOTREXATE [Suspect]
     Active Substance: METHOTREXATE
     Indication: Product used for unknown indication
     Dosage: TIME INTERVAL: TOTAL
     Route: 042
  13. METHOTREXATE [Suspect]
     Active Substance: METHOTREXATE
     Indication: Product used for unknown indication
     Dosage: TIME INTERVAL: TOTAL
     Route: 037
  14. METHOTREXATE [Suspect]
     Active Substance: METHOTREXATE
     Indication: Product used for unknown indication
     Dosage: TIME INTERVAL: TOTAL
     Route: 042
  15. METHOTREXATE [Suspect]
     Active Substance: METHOTREXATE
     Indication: Product used for unknown indication
     Dosage: TIME INTERVAL: TOTAL
     Route: 042
  16. METHOTREXATE [Suspect]
     Active Substance: METHOTREXATE
     Indication: Product used for unknown indication
     Route: 042
  17. METHOTREXATE [Suspect]
     Active Substance: METHOTREXATE
     Indication: Product used for unknown indication
     Dosage: DOSE FORM: SOLUTION FOR INJECTION/INFUSION
     Route: 037
  18. VINCRISTINE [Concomitant]
     Active Substance: VINCRISTINE
     Indication: Cerebrovascular accident
     Dosage: TIME INTERVAL: CYCLICAL
     Route: 065
  19. VINCRISTINE [Concomitant]
     Active Substance: VINCRISTINE
     Indication: Cerebrovascular accident
     Route: 065
  20. VINCRISTINE [Concomitant]
     Active Substance: VINCRISTINE
     Indication: Cerebrovascular accident
     Route: 065
  21. VINCRISTINE [Concomitant]
     Active Substance: VINCRISTINE
     Indication: Cerebrovascular accident
     Route: 042
  22. VINCRISTINE [Concomitant]
     Active Substance: VINCRISTINE
     Indication: Cerebrovascular accident
     Route: 042
  23. VINCRISTINE [Concomitant]
     Active Substance: VINCRISTINE
     Indication: Cerebrovascular accident
     Route: 065
  24. ASPIRIN [Suspect]
     Active Substance: ASPIRIN
     Indication: Cardiovascular event prophylaxis
     Route: 065
  25. ASPIRIN [Suspect]
     Active Substance: ASPIRIN
     Indication: Cardiovascular event prophylaxis
     Route: 065
  26. ASPIRIN [Interacting]
     Active Substance: ASPIRIN
     Indication: Cerebrovascular accident prophylaxis
     Dosage: DOSE FORM: NOT SPECIFIED
     Route: 065

REACTIONS (6)
  - Nephropathy toxic [Recovered/Resolved]
  - Drug interaction [Recovered/Resolved]
  - Product administered to patient of inappropriate age [Unknown]
  - Renal injury [Recovered/Resolved]
  - Contraindicated product administered [Recovered/Resolved]
  - Labelled drug-drug interaction issue [Recovered/Resolved]
